FAERS Safety Report 11822107 (Version 5)
Quarter: 2016Q2

REPORT INFORMATION
  Report Type: Spontaneous
  Country: JP (occurrence: JP)
  Receive Date: 20151210
  Receipt Date: 20160411
  Transmission Date: 20160815
  Serious: Yes (Hospitalization, Other)
  Sender: FDA-Public Use
  Company Number: JP-BRISTOL-MYERS SQUIBB COMPANY-BMS-2015-083539

PATIENT
  Age: 56 Year
  Sex: Male

DRUGS (10)
  1. CISPLATIN. [Concomitant]
     Active Substance: CISPLATIN
     Indication: SQUAMOUS CELL CARCINOMA OF THE HYPOPHARYNX
     Dosage: UNK
     Route: 041
     Dates: start: 20151026
  2. CISPLATIN. [Concomitant]
     Active Substance: CISPLATIN
     Dosage: 75 MG/M2, UNK
     Dates: start: 20151026, end: 20151207
  3. ERBITUX [Suspect]
     Active Substance: CETUXIMAB
     Dosage: 250 MG/M2, WEEKLY (1/W)
     Dates: start: 20151207
  4. ERBITUX [Suspect]
     Active Substance: CETUXIMAB
     Indication: SQUAMOUS CELL CARCINOMA OF THE HYPOPHARYNX
     Dosage: 400 MG/M2, QD
     Dates: start: 20151026, end: 20151026
  5. ERBITUX [Suspect]
     Active Substance: CETUXIMAB
     Dosage: 250 MG/M2, WEEKLY (1/W)
     Dates: start: 20151102, end: 20151116
  6. DOCETAXEL. [Concomitant]
     Active Substance: DOCETAXEL
     Dosage: 75 MG/M2, UNK
     Dates: start: 20151026, end: 20151207
  7. DOCETAXEL. [Concomitant]
     Active Substance: DOCETAXEL
     Indication: SQUAMOUS CELL CARCINOMA OF THE HYPOPHARYNX
     Dosage: UNK
     Route: 041
     Dates: start: 20151026
  8. FOSAPREPITANT MEGLUMINE [Suspect]
     Active Substance: FOSAPREPITANT
     Indication: PROPHYLAXIS OF NAUSEA AND VOMITING
     Dosage: 150 MG, UNKNOWN
     Route: 065
     Dates: start: 20151026
  9. CISPLATIN. [Concomitant]
     Active Substance: CISPLATIN
     Indication: SQUAMOUS CELL CARCINOMA OF THE HYPOPHARYNX
     Dosage: UNK
     Route: 041
     Dates: start: 20151116
  10. DOCETAXEL. [Concomitant]
     Active Substance: DOCETAXEL
     Indication: SQUAMOUS CELL CARCINOMA OF THE HYPOPHARYNX
     Dosage: UNK
     Route: 041
     Dates: start: 20151116

REACTIONS (20)
  - Dysphagia [Unknown]
  - Oropharyngeal pain [Unknown]
  - Dysphonia [Unknown]
  - Bone marrow failure [Unknown]
  - Peripheral sensory neuropathy [Unknown]
  - Oedema [Unknown]
  - Cutaneous symptom [Unknown]
  - Dermatitis acneiform [Unknown]
  - Peritonitis [Unknown]
  - Dry mouth [Unknown]
  - Constipation [Unknown]
  - Decreased appetite [Unknown]
  - Large intestine perforation [Recovered/Resolved]
  - Dysgeusia [Unknown]
  - Stomatitis [Unknown]
  - Radiation skin injury [Unknown]
  - Malaise [Unknown]
  - Alopecia [Unknown]
  - Hypertension [Unknown]
  - Dyspnoea [Unknown]

NARRATIVE: CASE EVENT DATE: 20151124
